FAERS Safety Report 8431495-4 (Version None)
Quarter: 2012Q2

REPORT INFORMATION
  Report Type: 
  Country: None (occurrence: None)
  Receive Date: 20120613
  Receipt Date: 20120607
  Transmission Date: 20120825
  Serious: Yes (Life-Threatening, Hospitalization)
  Sender: FDA-Public Use
  Company Number: JP-SHIRE-ALL1-2012-02398

PATIENT
  Age: 74 Year
  Sex: Male

DRUGS (5)
  1. CINACALCET HYDROCHLORIDE [Concomitant]
     Indication: HYPERPARATHYROIDISM SECONDARY
     Dosage: 25 MG, UNKNOWN
     Route: 048
     Dates: start: 20111026, end: 20120407
  2. KETOBUN A [Concomitant]
     Indication: HYPERURICAEMIA
     Dosage: 100 MG, UNKNOWN
     Route: 048
     Dates: end: 20120407
  3. FOSRENOL [Suspect]
     Indication: HYPERPHOSPHATAEMIA
     Dosage: 750 MG, UNKNOWN
     Route: 048
     Dates: start: 20090701, end: 20120407
  4. KALIMATE [Suspect]
     Indication: HYPERKALAEMIA
     Dosage: 10.2 G, UNKNOWN
     Route: 048
     Dates: end: 20120407
  5. ANPLAG [Concomitant]
     Indication: ARTERIAL OCCLUSIVE DISEASE
     Dosage: 300 MG, UNKNOWN
     Route: 048
     Dates: start: 20120130

REACTIONS (1)
  - LARGE INTESTINE PERFORATION [None]
